APPROVED DRUG PRODUCT: JANTOVEN
Active Ingredient: WARFARIN SODIUM
Strength: 5MG
Dosage Form/Route: TABLET;ORAL
Application: A040416 | Product #006 | TE Code: AB
Applicant: UPSHER SMITH LABORATORIES LLC
Approved: Oct 2, 2003 | RLD: No | RS: No | Type: RX